FAERS Safety Report 16672384 (Version 3)
Quarter: 2019Q3

REPORT INFORMATION
  Report Type: Spontaneous
  Country: FR (occurrence: FR)
  Receive Date: 20190806
  Receipt Date: 20190924
  Transmission Date: 20191004
  Serious: Yes (Life-Threatening)
  Sender: FDA-Public Use
  Company Number: FR-ACCORD-150386

PATIENT
  Age: 85 Year
  Sex: Male
  Weight: 75 kg

DRUGS (11)
  1. MIANSERIN [Suspect]
     Active Substance: MIANSERIN
     Dosage: INTENDED QUANTITY INGESTED: 4 TABLETS OF 30 MG
     Route: 048
     Dates: start: 20190701, end: 20190701
  2. KARDEGIC [Suspect]
     Active Substance: ASPIRIN DL-LYSINE
     Dosage: INTENDED DOSE INGESTED 4 SACHETS OF 75 MG,
     Route: 048
     Dates: start: 20190701, end: 20190701
  3. INSPRA [Suspect]
     Active Substance: EPLERENONE
     Dosage: QUANTITY SUPPOSED TO BE INGESTED: 4 CP, STRENGTH: 25 MG
     Route: 048
     Dates: start: 20190701, end: 20190701
  4. MELATONIN [Suspect]
     Active Substance: MELATONIN
     Dosage: INTENDED QUANTITY INGESTED: 4 TIMES 12 MG
     Route: 048
     Dates: start: 20190701, end: 20190701
  5. CORDARONE [Suspect]
     Active Substance: AMIODARONE HYDROCHLORIDE
     Dosage: PRESUMED QUANTITY INGESTED 200 MG OF 4 CP, STRENGTH: 200 MG, SCORED TABLET
     Route: 048
     Dates: start: 20190701, end: 20190701
  6. RAMIPRIL. [Suspect]
     Active Substance: RAMIPRIL
     Route: 048
     Dates: start: 20190701, end: 20190701
  7. LEVOTHYROX [Suspect]
     Active Substance: LEVOTHYROXINE
     Dosage: INTENDED AMOUNT INGESTED 4 X 125 MCG, STRENGTH: 125 MICROGRAMS, SCORED TABLET
     Route: 048
  8. IMOVANE [Suspect]
     Active Substance: ZOPICLONE
     Dosage: INTENDED AMOUNT INGESTED: 4 TIMES 7.5 MG, STRENGTH: 7.5 MG
     Route: 048
     Dates: start: 20190701, end: 20190701
  9. INEXIUM [Suspect]
     Active Substance: ESOMEPRAZOLE
     Dosage: INTENDED QUANTITY INGESTED: 4 TABLETS OF 20 MG, STRENGTH: 20 MG
     Route: 048
     Dates: start: 20190701, end: 20190701
  10. TAHOR [Suspect]
     Active Substance: ATORVASTATIN CALCIUM
     Dosage: STRENGTH: 10 MG
     Route: 048
     Dates: start: 20190701, end: 20190701
  11. BISOPROLOL [Suspect]
     Active Substance: BISOPROLOL
     Dosage: ASSUMED INGESTED DOSE: 4 CP 5 MG
     Route: 048
     Dates: start: 20190701, end: 20190701

REACTIONS (5)
  - Poisoning deliberate [Unknown]
  - Bradycardia [Recovered/Resolved]
  - Overdose [Unknown]
  - Cardiogenic shock [Recovered/Resolved]
  - Hypoglycaemia [Recovered/Resolved]

NARRATIVE: CASE EVENT DATE: 20190701
